FAERS Safety Report 14693658 (Version 1)
Quarter: 2018Q1

REPORT INFORMATION
  Report Type: Report from Study
  Country: BR (occurrence: BR)
  Receive Date: 20180329
  Receipt Date: 20180329
  Transmission Date: 20180509
  Serious: Yes (Other)
  Sender: FDA-Public Use
  Company Number: BR-BIOGEN-2018BI00547252

PATIENT
  Sex: Female

DRUGS (1)
  1. AVONEX [Suspect]
     Active Substance: INTERFERON BETA-1A
     Indication: MULTIPLE SCLEROSIS
     Route: 030
     Dates: start: 201103, end: 2012

REACTIONS (3)
  - Back pain [Unknown]
  - Maternal exposure during pregnancy [Recovered/Resolved]
  - Multiple sclerosis [Recovered/Resolved]

NARRATIVE: CASE EVENT DATE: 2013
